FAERS Safety Report 13804982 (Version 2)
Quarter: 2017Q3

REPORT INFORMATION
  Report Type: Spontaneous
  Country: US (occurrence: US)
  Receive Date: 20170728
  Receipt Date: 20170808
  Transmission Date: 20171127
  Serious: No
  Sender: FDA-Public Use
  Company Number: US-PFIZER INC-2017327025

PATIENT
  Age: 72 Year
  Sex: Female
  Weight: 64.41 kg

DRUGS (2)
  1. GABAPENTIN. [Suspect]
     Active Substance: GABAPENTIN
     Indication: POST HERPETIC NEURALGIA
     Dosage: 600 MG, 3X/DAY, (300MG CAPSULES, 2 CAPSULES 3 TIMES A DAY)
  2. GABAPENTIN. [Suspect]
     Active Substance: GABAPENTIN
     Dosage: UNK

REACTIONS (1)
  - Drug effect decreased [Unknown]

NARRATIVE: CASE EVENT DATE: 201707
